FAERS Safety Report 10862312 (Version 1)
Quarter: 2015Q1

REPORT INFORMATION
  Report Type: Spontaneous
  Country: US (occurrence: US)
  Receive Date: 20150224
  Receipt Date: 20150224
  Transmission Date: 20150721
  Serious: Yes (Hospitalization, Other)
  Sender: FDA-Public Use
  Company Number: US-ABBVIE-15P-163-1349391-00

PATIENT
  Sex: Male

DRUGS (2)
  1. TESTOSTERONE CYPIONATE. [Suspect]
     Active Substance: TESTOSTERONE CYPIONATE
     Indication: BLOOD TESTOSTERONE DECREASED
     Route: 050
     Dates: start: 2011, end: 20131001
  2. ANDROGEL [Suspect]
     Active Substance: TESTOSTERONE
     Indication: BLOOD TESTOSTERONE DECREASED
     Route: 061

REACTIONS (10)
  - Myocardial infarction [Unknown]
  - Prostate cancer [Unknown]
  - Economic problem [Unknown]
  - Fear [Unknown]
  - Emotional distress [Unknown]
  - Anhedonia [Unknown]
  - Physical disability [Unknown]
  - Injury [Unknown]
  - Social problem [Unknown]
  - Anxiety [Unknown]

NARRATIVE: CASE EVENT DATE: 20131001
